FAERS Safety Report 21999051 (Version 1)
Quarter: 2023Q1

REPORT INFORMATION
  Report Type: Report from Study
  Country: US (occurrence: US)
  Receive Date: 20230216
  Receipt Date: 20230216
  Transmission Date: 20230417
  Serious: No
  Sender: FDA-Public Use
  Company Number: US-002147023-NVSC2023US031920

PATIENT
  Sex: Male

DRUGS (9)
  1. COSENTYX [Suspect]
     Active Substance: SECUKINUMAB
     Indication: Psoriasis
     Dosage: 300 MG, PRN
     Route: 058
  2. BETAMETHASONE [Concomitant]
     Active Substance: BETAMETHASONE
     Indication: Psoriasis
     Dosage: 0.05 %, BID
     Route: 061
  3. BETAMETHASONE VALERATE [Concomitant]
     Active Substance: BETAMETHASONE VALERATE
     Indication: Psoriasis
     Dosage: 0.12 %
     Route: 061
  4. CALCIPOTRIENE [Concomitant]
     Active Substance: CALCIPOTRIENE
     Indication: Psoriasis
     Dosage: 1 DOSAGE FORM (0.005%)
     Route: 065
  5. CLOBETASOL [Concomitant]
     Active Substance: CLOBETASOL
     Indication: Psoriasis
     Dosage: 0.05 %, QD
     Route: 061
  6. CLOBETASOL [Concomitant]
     Active Substance: CLOBETASOL
     Dosage: 0.05 %, PRN
     Route: 061
  7. CYCLOSPORINE [Concomitant]
     Active Substance: CYCLOSPORINE
     Indication: Product used for unknown indication
     Dosage: 25 MG, BID
     Route: 048
  8. PREDNISONE [Concomitant]
     Active Substance: PREDNISONE
     Indication: Product used for unknown indication
     Dosage: 10 MG, PRN
     Route: 048
  9. VALACYCLOVIR [Concomitant]
     Active Substance: VALACYCLOVIR HYDROCHLORIDE
     Indication: Product used for unknown indication
     Dosage: 1 DOSAGE FORM, QD (1 GTT (DROP))
     Route: 048

REACTIONS (3)
  - Lichenoid keratosis [Unknown]
  - Papule [Unknown]
  - Arthralgia [Not Recovered/Not Resolved]
